FAERS Safety Report 10551507 (Version 4)
Quarter: 2014Q4

REPORT INFORMATION
  Report Type: Spontaneous
  Country: US (occurrence: US)
  Receive Date: 20141029
  Receipt Date: 20141111
  Transmission Date: 20150529
  Serious: No
  Sender: FDA-Public Use
  Company Number: US-PFIZER INC-2014278522

PATIENT
  Age: 88 Year
  Sex: Female

DRUGS (2)
  1. OPSUMIT [Concomitant]
     Active Substance: MACITENTAN
     Dosage: UNK
     Dates: start: 20140426
  2. REVATIO [Suspect]
     Active Substance: SILDENAFIL CITRATE
     Indication: PULMONARY HYPERTENSION
     Dosage: 2 DF, 3X/DAY (TWO TABLET BY MOUTH 3 TIMES DAILY)
     Route: 048

REACTIONS (2)
  - Intentional product misuse [Unknown]
  - Epistaxis [Recovered/Resolved]
